FAERS Safety Report 5533703-6 (Version None)
Quarter: 2007Q4

REPORT INFORMATION
  Report Type: 
  Country: None (occurrence: None)
  Receive Date: 20071129
  Receipt Date: 20071115
  Transmission Date: 20080405
  Serious: Yes (Other)
  Sender: FDA-Public Use
  Company Number: 2007AL004940

PATIENT
  Age: 68 Year
  Sex: Female

DRUGS (9)
  1. METFORMIN HYDROCHLORIDE [Suspect]
     Dosage: 1000 MG; QD; PO
     Route: 048
  2. COZAAR [Concomitant]
  3. SIMVASTATIN [Concomitant]
  4. NITROMEX [Concomitant]
  5. ALVEDON [Concomitant]
  6. FURIX [Concomitant]
  7. TROMBYL [Concomitant]
  8. LACTITOL [Concomitant]
  9. METOPROLOL SUCCINATE [Concomitant]

REACTIONS (2)
  - PRURITUS [None]
  - RASH [None]
